FAERS Safety Report 19871134 (Version 1)
Quarter: 2021Q3

REPORT INFORMATION
  Report Type: Spontaneous
  Country: GB (occurrence: GB)
  Receive Date: 20210923
  Receipt Date: 20210923
  Transmission Date: 20211014
  Serious: Yes (Other)
  Sender: FDA-Public Use
  Company Number: GB-AUROBINDO-AUR-APL-2021-039622

PATIENT
  Age: 54 Year
  Sex: Female
  Weight: 59 kg

DRUGS (1)
  1. SERTRALINE [Suspect]
     Active Substance: SERTRALINE HYDROCHLORIDE
     Indication: ILL-DEFINED DISORDER
     Dosage: 500 MILLIGRAM
     Route: 048
     Dates: start: 20210422, end: 20210522

REACTIONS (1)
  - Adverse drug reaction [Recovered/Resolved with Sequelae]

NARRATIVE: CASE EVENT DATE: 20210430
